FAERS Safety Report 12437452 (Version 1)
Quarter: 2016Q2

REPORT INFORMATION
  Report Type: Spontaneous
  Country: US (occurrence: None)
  Receive Date: 20160603
  Receipt Date: 20160603
  Transmission Date: 20160815
  Serious: Yes (Disabling)
  Sender: FDA-Public Use
  Company Number: None

PATIENT
  Age: 65 Year
  Sex: Male
  Weight: 78.93 kg

DRUGS (11)
  1. DIGOXIN. [Concomitant]
     Active Substance: DIGOXIN
  2. METOPROLOL. [Concomitant]
     Active Substance: METOPROLOL
  3. B6 [Concomitant]
     Active Substance: PYRIDOXINE HYDROCHLORIDE
  4. BLACK SEED OIL [Concomitant]
  5. CATS CLAW [Concomitant]
  6. MULTI-VIT [Concomitant]
     Active Substance: VITAMINS
  7. TUMERIC [Concomitant]
     Active Substance: TURMERIC
  8. FISH OIL [Concomitant]
     Active Substance: FISH OIL
  9. BANDEROL [Concomitant]
  10. PROBIOTIC [Concomitant]
     Active Substance: PROBIOTICS NOS
  11. ELIQUIS [Suspect]
     Active Substance: APIXABAN
     Indication: THROMBOSIS PROPHYLAXIS
     Route: 048
     Dates: start: 20151111, end: 20160602

REACTIONS (8)
  - Paraesthesia [None]
  - Nausea [None]
  - Fatigue [None]
  - Muscle fatigue [None]
  - Hypoacusis [None]
  - Vision blurred [None]
  - Hypoaesthesia [None]
  - Peripheral coldness [None]

NARRATIVE: CASE EVENT DATE: 20160602
